FAERS Safety Report 18328423 (Version 4)
Quarter: 2021Q3

REPORT INFORMATION
  Report Type: Spontaneous
  Country: DE (occurrence: DE)
  Receive Date: 20200930
  Receipt Date: 20210818
  Transmission Date: 20211014
  Serious: Yes (Death, Life-Threatening, Hospitalization, Disabling, Other)
  Sender: FDA-Public Use
  Company Number: NVSC2020DE263535

PATIENT
  Age: 65 Year
  Sex: Male
  Weight: 82 kg

DRUGS (7)
  1. TACROLIMUS. [Suspect]
     Active Substance: TACROLIMUS
     Dosage: 3 MG, QD
     Route: 048
     Dates: start: 20191024
  2. TACROLIMUS. [Suspect]
     Active Substance: TACROLIMUS
     Indication: RENAL TRANSPLANT
     Dosage: 2 MG, QD
     Route: 048
     Dates: start: 20160203
  3. TACROLIMUS. [Suspect]
     Active Substance: TACROLIMUS
     Indication: IMMUNOSUPPRESSION
     Dosage: 2.5 MG, QD
     Route: 048
     Dates: start: 20160416
  4. CELLCEPT [Concomitant]
     Active Substance: MYCOPHENOLATE MOFETIL\MYCOPHENOLATE MOFETIL HYDROCHLORIDE
     Indication: IMMUNOSUPPRESSANT DRUG THERAPY
     Dosage: 750 MG, BID (750 MG, UNKNOWN FREQ. (2X750MG)
     Route: 065
     Dates: start: 20180425
  5. TACROLIMUS. [Suspect]
     Active Substance: TACROLIMUS
     Dosage: 3 MG, QD
     Route: 048
     Dates: start: 20191105
  6. TACROLIMUS. [Suspect]
     Active Substance: TACROLIMUS
     Dosage: 2.5 MG,QD
     Route: 048
     Dates: start: 20161103
  7. TACROLIMUS. [Suspect]
     Active Substance: TACROLIMUS
     Dosage: 2 MG, QD
     Route: 048
     Dates: start: 20180424

REACTIONS (1)
  - Pancreatic carcinoma stage III [Fatal]

NARRATIVE: CASE EVENT DATE: 20191024
